FAERS Safety Report 7401177-6 (Version None)
Quarter: 2011Q2

REPORT INFORMATION
  Report Type: 
  Country: None (occurrence: None)
  Receive Date: 20110407
  Receipt Date: 20110328
  Transmission Date: 20111010
  Serious: Yes (Hospitalization, Other)
  Sender: FDA-Public Use
  Company Number: PHHO2011NL05478

PATIENT
  Sex: Male

DRUGS (11)
  1. PREDNISOLONE [Concomitant]
  2. TAMSULOSIN HCL [Concomitant]
  3. ACETYLSALICYLIC ACID SRT [Concomitant]
  4. FUROSEMIDE [Concomitant]
     Dosage: UNK
     Dates: start: 20110211
  5. ALFACALCIDOL [Concomitant]
     Dosage: UNK
     Dates: start: 20110301
  6. PRAVASTATIN [Concomitant]
     Dosage: UNK
     Dates: start: 20101207, end: 20110301
  7. METOPROLOL TARTRATE [Concomitant]
  8. PANTOPRAZOLE [Concomitant]
  9. AEB071 [Suspect]
     Indication: RENAL TRANSPLANT
     Dosage: 200 MG, BID
     Route: 048
     Dates: start: 20080905, end: 20110327
  10. RAD [Suspect]
     Indication: RENAL TRANSPLANT
     Dosage: 0.5 MG, BID
     Route: 048
     Dates: start: 20080905
  11. AMLODIPINE BESYLATE [Concomitant]

REACTIONS (2)
  - SKIN LESION [None]
  - OEDEMA [None]
